FAERS Safety Report 4847103-5 (Version None)
Quarter: 2005Q4

REPORT INFORMATION
  Report Type: 
  Country: None (occurrence: None)
  Receive Date: 20051205
  Receipt Date: 20051122
  Transmission Date: 20060501
  Serious: Yes (Other)
  Sender: FDA-Public Use
  Company Number: US016424

PATIENT
  Age: 59 Year
  Sex: Male

DRUGS (12)
  1. ALERTEC [Suspect]
     Dosage: 400 MG QD ORAL
     Route: 048
  2. ATACAND [Concomitant]
  3. AVANDIA [Concomitant]
  4. BEXTRA [Concomitant]
  5. GLUCONORM [Concomitant]
  6. FLUOXETINE [Concomitant]
  7. CYCLOBENZAPRINE [Concomitant]
  8. FENOFIBRATE [Concomitant]
  9. ENTERIC ASPIRIN [Concomitant]
  10. LIOTHYRONINE [Concomitant]
  11. NITRAZEPAM [Concomitant]
  12. PANTOPRAZOLE [Concomitant]

REACTIONS (6)
  - ANGINA UNSTABLE [None]
  - BUNDLE BRANCH BLOCK RIGHT [None]
  - CHEST PAIN [None]
  - CHOLELITHIASIS [None]
  - DYSPNOEA [None]
  - HYPERHIDROSIS [None]
